FAERS Safety Report 13031532 (Version 1)
Quarter: 2016Q4

REPORT INFORMATION
  Report Type: Spontaneous
  Country: US (occurrence: US)
  Receive Date: 20161215
  Receipt Date: 20161215
  Transmission Date: 20170207
  Serious: No
  Sender: FDA-Public Use
  Company Number: US-BAUSCH-BL-2016-002225

PATIENT
  Age: 9 Year
  Sex: Male
  Weight: 49.6 kg

DRUGS (2)
  1. SYPRINE [Suspect]
     Active Substance: TRIENTINE HYDROCHLORIDE
     Indication: HEPATO-LENTICULAR DEGENERATION
     Route: 048
  2. ZINC (COMPOUNDED) [Concomitant]
     Indication: HEPATO-LENTICULAR DEGENERATION
     Dosage: 3-4 WEEKS AGO
     Route: 048

REACTIONS (2)
  - Product difficult to swallow [Not Recovered/Not Resolved]
  - Retching [Not Recovered/Not Resolved]
